FAERS Safety Report 7133490-4 (Version None)
Quarter: 2010Q4

REPORT INFORMATION
  Report Type: 
  Country: None (occurrence: None)
  Receive Date: 20101202
  Receipt Date: 20101129
  Transmission Date: 20110411
  Serious: Yes (Other)
  Sender: FDA-Public Use
  Company Number: DE-PFIZER INC-2010129625

PATIENT
  Age: 39 Year
  Sex: Male

DRUGS (4)
  1. ZELDOX [Suspect]
     Indication: SCHIZOPHRENIA
     Dosage: 160 MG PER DAY
     Route: 048
     Dates: start: 20060101
  2. ZELDOX [Suspect]
     Dosage: 60MG IN THE MORNING, 40MG IN THE AFTERNOON, 20MG IN THE EVENING
     Route: 048
  3. ZELDOX [Suspect]
     Dosage: 60MG IN THE MORNING, 40MG IN THE EVENING
     Dates: start: 20100930
  4. ZOPICLON [Concomitant]
     Indication: SLEEP DISORDER
     Dosage: 7.5 MG PER DAY
     Route: 048
     Dates: start: 20060101

REACTIONS (5)
  - ARRHYTHMIA [None]
  - CHEST PAIN [None]
  - DIZZINESS [None]
  - HYPERVENTILATION [None]
  - PALLOR [None]
